FAERS Safety Report 20458724 (Version 1)
Quarter: 2022Q1

REPORT INFORMATION
  Report Type: Spontaneous
  Country: FR (occurrence: FR)
  Receive Date: 20220211
  Receipt Date: 20220211
  Transmission Date: 20220423
  Serious: Yes (Congenital Anomaly, Other)
  Sender: FDA-Public Use
  Company Number: FR-ABBVIE-22K-056-4274373-00

PATIENT

DRUGS (1)
  1. VALPROATE SODIUM [Suspect]
     Active Substance: VALPROATE SODIUM
     Indication: Maternal exposure timing unspecified
     Route: 064

REACTIONS (22)
  - Multiple congenital abnormalities [Unknown]
  - Cleft lip and palate [Unknown]
  - Auditory disorder [Unknown]
  - Dysmorphism [Unknown]
  - Communication disorder [Unknown]
  - Skull malformation [Unknown]
  - Congenital hand malformation [Unknown]
  - Congenital foot malformation [Unknown]
  - Congenital genitourinary abnormality [Unknown]
  - Heart disease congenital [Unknown]
  - Intellectual disability [Unknown]
  - Attention deficit hyperactivity disorder [Unknown]
  - Psychomotor retardation [Unknown]
  - Language disorder [Unknown]
  - Behaviour disorder [Unknown]
  - Visual impairment [Unknown]
  - Ear, nose and throat disorder [Unknown]
  - Spina bifida [Unknown]
  - Learning disorder [Unknown]
  - Neurodevelopmental disorder [Unknown]
  - Autism spectrum disorder [Unknown]
  - Foetal exposure during pregnancy [Unknown]
